FAERS Safety Report 5150140-7 (Version None)
Quarter: 2006Q4

REPORT INFORMATION
  Report Type: 
  Country: None (occurrence: None)
  Receive Date: 20061109
  Receipt Date: 20061109
  Transmission Date: 20070319
  Serious: Yes (Life-Threatening, Hospitalization)
  Sender: FDA-Public Use
  Company Number: None

PATIENT
  Sex: Female
  Weight: 127 kg

DRUGS (3)
  1. CEFUROXIME AXETIL [Suspect]
     Indication: PNEUMONIA
     Dosage: 500 MG BID ORAL
     Route: 048
     Dates: start: 20060907, end: 20060908
  2. HEPARIN [Concomitant]
  3. AZYTHROMYCIN [Concomitant]

REACTIONS (7)
  - COUGH [None]
  - DYSPNOEA [None]
  - LEUKOCYTOCLASTIC VASCULITIS [None]
  - PURPURA [None]
  - SERUM SICKNESS [None]
  - SKIN DISCOLOURATION [None]
  - SPUTUM DISCOLOURED [None]
